FAERS Safety Report 14701730 (Version 3)
Quarter: 2018Q2

REPORT INFORMATION
  Report Type: Spontaneous
  Country: US (occurrence: US)
  Receive Date: 20180331
  Receipt Date: 20180613
  Transmission Date: 20180711
  Serious: Yes (Other)
  Sender: FDA-Public Use
  Company Number: PHEH2018US011776

PATIENT
  Sex: Male

DRUGS (2)
  1. AFINITOR [Suspect]
     Active Substance: EVEROLIMUS
     Indication: RENAL CANCER
     Route: 065
  2. LENVATINIB [Suspect]
     Active Substance: LENVATINIB
     Indication: RENAL CANCER
     Dosage: 18 MG, QD
     Route: 048
     Dates: start: 20180412

REACTIONS (13)
  - Malignant neoplasm progression [Unknown]
  - Weight decreased [Unknown]
  - Nausea [Recovering/Resolving]
  - Diarrhoea [Recovered/Resolved]
  - Full blood count abnormal [Unknown]
  - Osteoarthritis [Unknown]
  - Blood glucose increased [Unknown]
  - Renal cancer [Unknown]
  - Glomerular filtration rate abnormal [Unknown]
  - Haematochezia [Unknown]
  - Blood alkaline phosphatase abnormal [Unknown]
  - Fatigue [Recovering/Resolving]
  - Back pain [Unknown]
